FAERS Safety Report 4375255-2 (Version None)
Quarter: 2004Q2

REPORT INFORMATION
  Report Type: 
  Country: None (occurrence: None)
  Receive Date: 20040608
  Receipt Date: 20040524
  Transmission Date: 20050107
  Serious: Yes (Hospitalization)
  Sender: FDA-Public Use
  Company Number: 2004S1001517

PATIENT
  Age: 67 Year
  Sex: Female

DRUGS (3)
  1. GLYBURIDE [Suspect]
  2. ACTOS [Suspect]
  3. HUMALOG [Suspect]

REACTIONS (1)
  - DIABETES MELLITUS INADEQUATE CONTROL [None]
